FAERS Safety Report 8007643-7 (Version None)
Quarter: 2011Q4

REPORT INFORMATION
  Report Type: 
  Country: None (occurrence: None)
  Receive Date: 20111227
  Receipt Date: 20111011
  Transmission Date: 20120403
  Serious: No
  Sender: FDA-Public Use
  Company Number: US-BAYER-2011-099836

PATIENT
  Sex: Male

DRUGS (3)
  1. TYLENOL-500 [Concomitant]
     Indication: PYREXIA
  2. IBUPROFEN (ADVIL) [Concomitant]
     Indication: PYREXIA
  3. AVELOX [Suspect]
     Indication: PHARYNGITIS STREPTOCOCCAL
     Dosage: 400 MG, ONCE
     Route: 048
     Dates: start: 20110929, end: 20110929

REACTIONS (3)
  - HYPERHIDROSIS [None]
  - PRURITUS [None]
  - URTICARIA [None]
